FAERS Safety Report 5983821-3 (Version None)
Quarter: 2008Q4

REPORT INFORMATION
  Report Type: 
  Country: None (occurrence: None)
  Receive Date: 20081205
  Receipt Date: 20081205
  Transmission Date: 20090506
  Serious: Yes (Hospitalization)
  Sender: FDA-Public Use
  Company Number: None

PATIENT
  Sex: Male
  Weight: 58.3 kg

DRUGS (2)
  1. CISPLATIN [Suspect]
     Dosage: 43 MG
     Dates: end: 20081124
  2. PACLITAXEL [Suspect]
     Dosage: 85 MG
     Dates: end: 20081124

REACTIONS (6)
  - COUGH [None]
  - DIZZINESS [None]
  - DYSPHAGIA [None]
  - HYPOPHAGIA [None]
  - NAUSEA [None]
  - VOMITING [None]
